FAERS Safety Report 20860670 (Version 1)
Quarter: 2022Q2

REPORT INFORMATION
  Report Type: Spontaneous
  Country: AT (occurrence: AT)
  Receive Date: 20220523
  Receipt Date: 20220523
  Transmission Date: 20220720
  Serious: Yes (Other)
  Sender: FDA-Public Use
  Company Number: AT-ABBVIE-22K-009-4384183-00

PATIENT
  Age: 26 Year
  Sex: Female

DRUGS (6)
  1. ADALIMUMAB [Suspect]
     Active Substance: ADALIMUMAB
     Indication: Crohn^s disease
     Dosage: 40 MILLIGRAM, Q2WK
     Route: 058
     Dates: start: 2021, end: 2021
  2. ADALIMUMAB [Suspect]
     Active Substance: ADALIMUMAB
     Dosage: 160 MILLIGRAM
     Route: 058
     Dates: start: 202102, end: 2021
  3. ADALIMUMAB [Suspect]
     Active Substance: ADALIMUMAB
     Dosage: 40 MILLIGRAM
     Route: 058
     Dates: start: 20211117
  4. PREDNISOLONE [Concomitant]
     Active Substance: PREDNISOLONE
     Indication: Crohn^s disease
     Dosage: 1-0-0 FOR 1 WEEK, 1/2-0-0 FOR 2 WEEKS
  5. PREDNISOLONE [Concomitant]
     Active Substance: PREDNISOLONE
     Dosage: 25MG 1-0-0 FOR 1 WEEK, THEREAFTER 0.5-0-0 FOR 2 WEEKS.
     Dates: start: 20210812
  6. USTEKINUMAB [Concomitant]
     Active Substance: USTEKINUMAB
     Indication: Product used for unknown indication
     Dosage: UNK
     Dates: start: 20200407, end: 20220409

REACTIONS (12)
  - Lupus-like syndrome [Recovering/Resolving]
  - Mobility decreased [Recovering/Resolving]
  - Joint swelling [Recovering/Resolving]
  - Faecal calprotectin increased [Not Recovered/Not Resolved]
  - Erythema [Recovering/Resolving]
  - Antinuclear antibody increased [Unknown]
  - Faecal calprotectin increased [Recovered/Resolved]
  - Intussusception [Unknown]
  - C-reactive protein increased [Unknown]
  - Arthropathy [Recovering/Resolving]
  - Synovitis [Recovering/Resolving]
  - Drug specific antibody present [Unknown]

NARRATIVE: CASE EVENT DATE: 20210810
